FAERS Safety Report 17943172 (Version 1)
Quarter: 2020Q2

REPORT INFORMATION
  Report Type: Spontaneous
  Country: DK (occurrence: DK)
  Receive Date: 20200625
  Receipt Date: 20200625
  Transmission Date: 20200714
  Serious: Yes (Hospitalization)
  Sender: FDA-Public Use
  Company Number: DK-HRARD-202000485

PATIENT
  Age: 80 Year
  Sex: Female
  Weight: 60 kg

DRUGS (6)
  1. AMLODIPIN ^ACCORD^ [Concomitant]
     Indication: HYPERTENSION
     Dosage: STRENGTH: 10 MG.
     Route: 048
  2. METOPIRONE [Suspect]
     Active Substance: METYRAPONE
     Indication: CUSHING^S SYNDROME
     Dosage: 250 MG TID ON 25 MAY 2020, INCREASED TO 500 MG TID ON 28 MAY 2020
     Route: 048
     Dates: start: 20200525, end: 20200530
  3. CENTYL MED KALIUMKLORID [Concomitant]
     Active Substance: BENDROFLUMETHIAZIDE\POTASSIUM CHLORIDE
     Indication: HYPERTENSION
     Dosage: STRENGTH: 2.5 +573 MG.
     Route: 048
  4. SIMVASTATIN ^KRKA^ [Concomitant]
     Indication: HYPERLIPIDAEMIA
     Dosage: STRENGTH: 40 MG.
     Route: 048
  5. COZAAR [Concomitant]
     Active Substance: LOSARTAN POTASSIUM
     Indication: HYPERTENSION
     Dosage: STRENGTH: 100 MG.
     Route: 048
  6. ACETYLSALICYLSYRE ^TEVA^ [Concomitant]
     Active Substance: ASPIRIN
     Indication: MYOCARDIAL ISCHAEMIA
     Dosage: STRENGTH: 75 MG.
     Route: 048

REACTIONS (1)
  - Thrombocytopenia [Unknown]

NARRATIVE: CASE EVENT DATE: 20200529
